FAERS Safety Report 7859017-7 (Version None)
Quarter: 2011Q4

REPORT INFORMATION
  Report Type: 
  Country: None (occurrence: None)
  Receive Date: 20111027
  Receipt Date: 20111018
  Transmission Date: 20120403
  Serious: Yes (Death, Hospitalization)
  Sender: FDA-Public Use
  Company Number: US-JNJFOC-20111009739

PATIENT
  Sex: Male

DRUGS (3)
  1. PLACEBO [Suspect]
     Indication: PROSTATE CANCER
     Route: 042
     Dates: start: 20101221, end: 20110223
  2. IPILIMUMAB [Suspect]
     Indication: PROSTATE CANCER
     Route: 042
     Dates: start: 20101221, end: 20110223
  3. DURAGESIC-100 [Suspect]
     Indication: PRODUCT USED FOR UNKNOWN INDICATION
     Route: 062
     Dates: start: 20110120

REACTIONS (4)
  - ABDOMINAL PAIN [None]
  - CONSTIPATION [None]
  - NEOPLASM MALIGNANT [None]
  - ASTHENIA [None]
